FAERS Safety Report 17422311 (Version 3)
Quarter: 2020Q3

REPORT INFORMATION
  Report Type: Report from Study
  Country: TW (occurrence: TW)
  Receive Date: 20200214
  Receipt Date: 20200722
  Transmission Date: 20201102
  Serious: Yes (Hospitalization, Other)
  Sender: FDA-Public Use
  Company Number: TW-TAKEDA-2020TUS009095

PATIENT
  Age: 69 Year
  Sex: Female

DRUGS (2)
  1. VEDOLIZUMAB [Suspect]
     Active Substance: VEDOLIZUMAB
     Indication: CROHN^S DISEASE
     Dosage: UNK
     Route: 042
     Dates: start: 20191004
  2. NORVASC [Concomitant]
     Active Substance: AMLODIPINE BESYLATE
     Indication: HYPERTENSION
     Dosage: UNK UNK, QD

REACTIONS (9)
  - Pneumoperitoneum [Unknown]
  - Diverticulitis [Unknown]
  - Melaena [Unknown]
  - Diverticulum [Unknown]
  - Abdominal pain [Unknown]
  - Leukocytosis [Unknown]
  - C-reactive protein increased [Unknown]
  - Haematochezia [Unknown]
  - Pyrexia [Unknown]
